FAERS Safety Report 14534447 (Version 1)
Quarter: 2018Q1

REPORT INFORMATION
  Report Type: Report from Study
  Country: FR (occurrence: FR)
  Receive Date: 20180215
  Receipt Date: 20180215
  Transmission Date: 20180509
  Serious: Yes (Other)
  Sender: FDA-Public Use
  Company Number: FR-AUROBINDO-AUR-APL-2017-37725

PATIENT

DRUGS (1)
  1. AZITHROMYCIN ARROW FILM-COATED TABLETS 250MG [Suspect]
     Active Substance: AZITHROMYCIN
     Indication: PROPHYLAXIS
     Dosage: UNK

REACTIONS (2)
  - Recurrent cancer [Unknown]
  - Clinical trial participant [Unknown]
